FAERS Safety Report 7983543-3 (Version None)
Quarter: 2011Q4

REPORT INFORMATION
  Report Type: 
  Country: None (occurrence: None)
  Receive Date: 20111215
  Receipt Date: 20111206
  Transmission Date: 20120403
  Serious: Yes (Hospitalization, Other)
  Sender: FDA-Public Use
  Company Number: US-ASTRAZENECA-2006UW06935

PATIENT
  Age: 62 Year
  Sex: Female
  Weight: 59 kg

DRUGS (6)
  1. CITRACAL [Concomitant]
  2. NEXIUM [Concomitant]
     Dosage: 1-2 PER DAY
     Route: 048
  3. VAGIFEM [Concomitant]
  4. CRESTOR [Suspect]
     Indication: BLOOD CHOLESTEROL INCREASED
     Route: 048
  5. MULTI-VITAMIN [Concomitant]
  6. COMBIPATH [Concomitant]

REACTIONS (10)
  - FEELING ABNORMAL [None]
  - HYPERTENSION [None]
  - PALPITATIONS [None]
  - SYNCOPE [None]
  - FATIGUE [None]
  - MYOCARDIAL INFARCTION [None]
  - ASTHENIA [None]
  - DIZZINESS [None]
  - FEELING HOT [None]
  - CORONARY ARTERY OCCLUSION [None]
